FAERS Safety Report 19435581 (Version 1)
Quarter: 2021Q2

REPORT INFORMATION
  Report Type: Spontaneous
  Country: US (occurrence: US)
  Receive Date: 20210618
  Receipt Date: 20210618
  Transmission Date: 20210717
  Serious: Yes (Hospitalization)
  Sender: FDA-Public Use
  Company Number: US-EMCURE PHARMACEUTICALS LTD-2021-EPL-001928

PATIENT
  Age: 58 Year
  Sex: Male

DRUGS (2)
  1. LITHIUM CARBONATE. [Suspect]
     Active Substance: LITHIUM CARBONATE
     Indication: SCHIZOAFFECTIVE DISORDER
     Dosage: 900 MILLIGRAM, DAILY
  2. RISPERIDONE. [Suspect]
     Active Substance: RISPERIDONE
     Indication: SCHIZOAFFECTIVE DISORDER
     Dosage: 2 MILLIGRAM, DAILY

REACTIONS (6)
  - Catatonia [Recovering/Resolving]
  - Hyperparathyroidism [Recovering/Resolving]
  - Off label use [Unknown]
  - Treatment noncompliance [Recovering/Resolving]
  - Hypercalcaemia [Recovering/Resolving]
  - Electrocardiogram QT prolonged [Recovering/Resolving]
